FAERS Safety Report 6069688-6 (Version None)
Quarter: 2009Q1

REPORT INFORMATION
  Report Type: 
  Country: None (occurrence: None)
  Receive Date: 20090209
  Receipt Date: 20090202
  Transmission Date: 20090719
  Serious: Yes (Death, Hospitalization, Other)
  Sender: FDA-Public Use
  Company Number: US-TEVA-184781USA

PATIENT
  Age: 80 Year
  Sex: Female

DRUGS (1)
  1. AMLODIPINE BESYLATE,2.5 MG (BASE) + 5 MG (BASE) + 10 MG (BASE) TABLETS [Suspect]

REACTIONS (1)
  - LIVER DISORDER [None]
